FAERS Safety Report 6911602-2 (Version None)
Quarter: 2010Q3

REPORT INFORMATION
  Report Type: 
  Country: None (occurrence: None)
  Receive Date: 20100806
  Receipt Date: 20100726
  Transmission Date: 20110219
  Serious: Yes (Hospitalization, Other)
  Sender: FDA-Public Use
  Company Number: US-PFIZER INC-2010094214

PATIENT
  Sex: Female
  Weight: 81.633 kg

DRUGS (10)
  1. CHANTIX [Suspect]
     Indication: SMOKING CESSATION THERAPY
     Dosage: UNK
     Route: 048
     Dates: start: 20091101, end: 20091218
  2. SINGULAIR [Concomitant]
     Indication: HYPERSENSITIVITY
     Dosage: UNK
  3. PROTONIX [Concomitant]
     Indication: GASTROOESOPHAGEAL REFLUX DISEASE
     Dosage: UNK
  4. LEXAPRO [Concomitant]
     Dosage: 20 MG, UNK
  5. SEROQUEL [Concomitant]
     Dosage: 400 MG, UNK
  6. LYRICA [Concomitant]
     Dosage: 600 MG, UNK
  7. TIZANIDINE [Concomitant]
     Dosage: 4 MG, UNK
  8. HYDROXYCHLOROQUINE [Concomitant]
     Dosage: 200 MG, UNK
  9. CYCLOSPORINE [Concomitant]
  10. VITAMIN D [Concomitant]
     Dosage: 50000 IU, UNK

REACTIONS (19)
  - ABDOMINAL DISCOMFORT [None]
  - ABDOMINAL PAIN [None]
  - ABDOMINAL PAIN UPPER [None]
  - ANAEMIA [None]
  - BOWEL MOVEMENT IRREGULARITY [None]
  - BREATH ODOUR [None]
  - CERVICAL CYST [None]
  - DEHYDRATION [None]
  - DIARRHOEA [None]
  - DYSGEUSIA [None]
  - HYPERHIDROSIS [None]
  - HYPOGLYCAEMIA [None]
  - MUSCLE SPASMS [None]
  - MUSCLE TWITCHING [None]
  - NAUSEA [None]
  - RASH [None]
  - SLEEP DISORDER [None]
  - UTERINE CYST [None]
  - VOMITING [None]
